FAERS Safety Report 5273606-8 (Version None)
Quarter: 2007Q1

REPORT INFORMATION
  Report Type: 
  Country: None (occurrence: None)
  Receive Date: 20061219
  Receipt Date: 20060926
  Transmission Date: 20070707
  Serious: Yes (Hospitalization)
  Sender: FDA-Public Use
  Company Number: US-JNJFOC-20060605549

PATIENT
  Age: 21 Year
  Sex: Female
  Weight: 71.2147 kg

DRUGS (3)
  1. ORTHO EVRA [Suspect]
     Indication: CONTRACEPTION
     Dosage: TRANSDERMAL
     Route: 062
     Dates: end: 20030730
  2. LIBRAX [Concomitant]
  3. LEVAQUIN [Concomitant]

REACTIONS (8)
  - ARTERIAL THROMBOSIS [None]
  - ARTHRALGIA [None]
  - BACK PAIN [None]
  - DEEP VEIN THROMBOSIS [None]
  - ILIAC ARTERY THROMBOSIS [None]
  - PULMONARY EMBOLISM [None]
  - VENA CAVA THROMBOSIS [None]
  - VENOUS THROMBOSIS [None]
